FAERS Safety Report 12220182 (Version 1)
Quarter: 2016Q1

REPORT INFORMATION
  Report Type: Spontaneous
  Country: DE (occurrence: DE)
  Receive Date: 20160330
  Receipt Date: 20160330
  Transmission Date: 20160526
  Serious: Yes (Other)
  Sender: FDA-Public Use
  Company Number: DE-DRREDDYS-GER/GER/16/0078162

PATIENT
  Age: 38 Year
  Sex: Female
  Weight: 80.9 kg

DRUGS (3)
  1. OLANZAPINE. [Suspect]
     Active Substance: OLANZAPINE
     Indication: SCHIZOPHRENIA
     Route: 048
     Dates: start: 20150222, end: 20151130
  2. CEFUROXIM [Concomitant]
     Active Substance: CEFUROXIME
     Indication: PREMATURE RUPTURE OF MEMBRANES
     Route: 041
     Dates: start: 20151130, end: 20151130
  3. FOLIO [Concomitant]
     Active Substance: FOLIC ACID
     Indication: PROPHYLAXIS OF NEURAL TUBE DEFECT
     Route: 048
     Dates: start: 20150222, end: 20151115

REACTIONS (3)
  - Premature rupture of membranes [Recovered/Resolved]
  - Gestational diabetes [Recovered/Resolved]
  - Exposure during pregnancy [Recovered/Resolved]
